FAERS Safety Report 11292452 (Version 1)
Quarter: 2015Q3

REPORT INFORMATION
  Report Type: Report from Study
  Country: US (occurrence: US)
  Receive Date: 20150722
  Receipt Date: 20150722
  Transmission Date: 20151125
  Serious: Yes (Death, Other)
  Sender: FDA-Public Use
  Company Number: US-GILEAD-2015-0163464

PATIENT
  Age: 61 Year
  Sex: Female

DRUGS (2)
  1. RANOLAZINE [Suspect]
     Active Substance: RANOLAZINE
     Indication: ANGINA PECTORIS
     Dosage: 500 MG, UNK
     Route: 048
     Dates: end: 20150611
  2. RANOLAZINE [Suspect]
     Active Substance: RANOLAZINE
     Dosage: 1000 UNK, UNK
     Route: 048
     Dates: start: 20140811, end: 20150611

REACTIONS (1)
  - Death [Fatal]

NARRATIVE: CASE EVENT DATE: 20150611
